FAERS Safety Report 7549799-6 (Version None)
Quarter: 2011Q2

REPORT INFORMATION
  Report Type: 
  Country: None (occurrence: None)
  Receive Date: 20110615
  Receipt Date: 20071203
  Transmission Date: 20111010
  Serious: Yes (Other)
  Sender: FDA-Public Use
  Company Number: PHFR2007GB02888

PATIENT
  Sex: Male

DRUGS (5)
  1. RISPERIDONE [Concomitant]
     Dosage: 2 MG, BID
     Route: 048
  2. LORAZEPAM [Concomitant]
     Dosage: 2 MG, PRN
     Route: 048
  3. PROCYCLIDINE HYDROCHLORIDE 2MG TAB [Concomitant]
     Dosage: 5 MG, BID
     Route: 048
  4. HALOPERIDOL [Concomitant]
     Dosage: 5 MG, PRN
     Route: 048
  5. CLOZAPINE [Suspect]
     Indication: SCHIZOPHRENIA
     Dosage: 25 MG, BID
     Route: 048
     Dates: start: 20070926

REACTIONS (3)
  - OESOPHAGITIS [None]
  - HAEMATEMESIS [None]
  - HIATUS HERNIA [None]
